FAERS Safety Report 5739725-4 (Version None)
Quarter: 2008Q2

REPORT INFORMATION
  Report Type: 
  Country: None (occurrence: None)
  Receive Date: 20080512
  Receipt Date: 20080512
  Transmission Date: 20081010
  Serious: Yes (Hospitalization)
  Sender: FDA-Public Use
  Company Number: None

PATIENT
  Age: 36 Year
  Sex: Female

DRUGS (2)
  1. TOPIRAMATE 30MG [Suspect]
     Indication: CLUSTER HEADACHE
     Dosage: 30MG BID PO
     Route: 048
  2. TOPIRAMATE 30MG [Suspect]
     Indication: MIGRAINE
     Dosage: 30MG BID PO
     Route: 048

REACTIONS (10)
  - ARTHRALGIA [None]
  - BACK PAIN [None]
  - CHEST PAIN [None]
  - DYSPNOEA [None]
  - INCREASED APPETITE [None]
  - INSOMNIA [None]
  - MUSCLE SPASMS [None]
  - NO THERAPEUTIC RESPONSE [None]
  - PAIN IN EXTREMITY [None]
  - POLLAKIURIA [None]
